FAERS Safety Report 17129748 (Version 1)
Quarter: 2019Q4

REPORT INFORMATION
  Report Type: Spontaneous
  Country: SG (occurrence: SG)
  Receive Date: 20191209
  Receipt Date: 20191209
  Transmission Date: 20200122
  Serious: Yes (Hospitalization)
  Sender: FDA-Public Use
  Company Number: SG-SA-2019SA334772

PATIENT
  Age: 63 Year
  Sex: Female
  Weight: 52.9 kg

DRUGS (6)
  1. DEXAMETHASONE. [Concomitant]
     Active Substance: DEXAMETHASONE
     Indication: VOMITING
     Dosage: 8 MG, QCY
     Route: 042
     Dates: start: 20190703, end: 20190703
  2. ONDANSETRON [Concomitant]
     Active Substance: ONDANSETRON
     Indication: VOMITING
     Dosage: 8 MG, QCY
     Route: 042
     Dates: start: 20190703, end: 20190703
  3. BEVACIZUMAB. [Concomitant]
     Active Substance: BEVACIZUMAB
     Indication: NEOPLASM
     Dosage: 250 MG, QCY
     Route: 042
     Dates: start: 20190703, end: 20190703
  4. OXALIPLATIN. [Suspect]
     Active Substance: OXALIPLATIN
     Indication: NEOPLASM
     Dosage: 120 MG, QCY
     Route: 042
     Dates: start: 20190717, end: 20190717
  5. FLUOROURACIL. [Concomitant]
     Active Substance: FLUOROURACIL
     Indication: NEOPLASM
     Dosage: 3200 MG, QCY
     Route: 042
     Dates: start: 20190703, end: 20190703
  6. LEUCOVORIN [CALCIUM FOLINATE] [Concomitant]
     Active Substance: LEUCOVORIN
     Indication: NEOPLASM
     Dosage: 600 MG, QCY
     Route: 042
     Dates: start: 20190703, end: 20190703

REACTIONS (10)
  - Feeling hot [Recovered/Resolved]
  - Lip swelling [Recovered/Resolved]
  - Flushing [Recovered/Resolved]
  - Dyspnoea [Recovered/Resolved]
  - Chest discomfort [Recovered/Resolved]
  - Vomiting [Recovered/Resolved]
  - Rash [Recovered/Resolved]
  - Abdominal discomfort [Recovered/Resolved]
  - Chills [Recovered/Resolved]
  - Dysphonia [Recovered/Resolved]

NARRATIVE: CASE EVENT DATE: 20190717
